FAERS Safety Report 7373607-X (Version None)
Quarter: 2011Q1

REPORT INFORMATION
  Report Type: 
  Country: None (occurrence: None)
  Receive Date: 20110325
  Receipt Date: 20110315
  Transmission Date: 20110831
  Serious: Yes (Other)
  Sender: FDA-Public Use
  Company Number: BR-BAYER-200924725LA

PATIENT
  Sex: Female

DRUGS (7)
  1. PURAN T4 [Concomitant]
     Indication: HYPOTHYROIDISM
     Dosage: 112 MG, QD
     Route: 048
     Dates: start: 20101101
  2. VENLAFAXINE HCL [Concomitant]
     Indication: ANTIDEPRESSANT THERAPY
     Dosage: AS USED DOSE: UNK
     Route: 048
     Dates: start: 20080101
  3. BETAFERON [Suspect]
     Indication: ANTIDEPRESSANT THERAPY
     Dosage: BETAJECT
     Route: 058
     Dates: start: 20090601, end: 20091119
  4. DIPYRONE [Concomitant]
  5. OMEPRAZOLE [Concomitant]
     Indication: PROPHYLAXIS
     Route: 048
     Dates: start: 20091119
  6. DIPYRONE [Concomitant]
     Indication: PAIN
     Dosage: AS USED DOSE: UNK
     Route: 048
  7. OMEPRAZOLE [Concomitant]

REACTIONS (7)
  - ASTHENIA [None]
  - NAUSEA [None]
  - VOMITING [None]
  - IMMUNE SYSTEM DISORDER [None]
  - BREAST CANCER FEMALE [None]
  - FATIGUE [None]
  - MALAISE [None]
